FAERS Safety Report 13887321 (Version 1)
Quarter: 2017Q3

REPORT INFORMATION
  Report Type: Spontaneous
  Country: US (occurrence: US)
  Receive Date: 20170821
  Receipt Date: 20170821
  Transmission Date: 20171127
  Serious: No
  Sender: FDA-Public Use
  Company Number: US-ROCHE-792396

PATIENT
  Age: 81 Year
  Sex: Male

DRUGS (1)
  1. ACTEMRA [Suspect]
     Active Substance: TOCILIZUMAB
     Indication: RHEUMATOID ARTHRITIS
     Route: 042

REACTIONS (6)
  - Dizziness [Unknown]
  - Swelling face [Unknown]
  - Asthenia [Unknown]
  - Hypersensitivity [Unknown]
  - Dyspnoea [Unknown]
  - Hepatitis B reactivation [Unknown]

NARRATIVE: CASE EVENT DATE: 20110720
